FAERS Safety Report 4306871-1 (Version None)
Quarter: 2004Q1

REPORT INFORMATION
  Report Type: 
  Country: None (occurrence: None)
  Receive Date: 20040227
  Receipt Date: 20031002
  Transmission Date: 20041129
  Serious: Yes (Hospitalization, Other)
  Sender: FDA-Public Use
  Company Number: FR-GLAXOSMITHKLINE-B0311139A

PATIENT
  Age: 42 Year
  Sex: Female
  Weight: 61 kg

DRUGS (3)
  1. ZIAGEN [Suspect]
     Indication: HIV INFECTION
     Dosage: 300MG TWICE PER DAY
     Route: 048
     Dates: start: 20030901, end: 20031002
  2. KALETRA [Concomitant]
     Indication: HIV INFECTION
     Dosage: 3CAP TWICE PER DAY
     Route: 048
     Dates: start: 20030901, end: 20031002
  3. VIDEX [Concomitant]
     Indication: HIV INFECTION
     Dosage: 400MG PER DAY
     Route: 048
     Dates: start: 20030901, end: 20031002

REACTIONS (5)
  - ASPARTATE AMINOTRANSFERASE INCREASED [None]
  - BLOOD CREATINE PHOSPHOKINASE INCREASED [None]
  - MUSCLE ATROPHY [None]
  - MYALGIA [None]
  - MYOGLOBIN BLOOD INCREASED [None]
